FAERS Safety Report 4546709-0 (Version None)
Quarter: 2005Q1

REPORT INFORMATION
  Report Type: 
  Country: None (occurrence: None)
  Receive Date: 20050105
  Receipt Date: 20041229
  Transmission Date: 20050727
  Serious: No
  Sender: FDA-Public Use
  Company Number: 2005PK00011

PATIENT
  Age: 65 Year
  Sex: Female

DRUGS (6)
  1. ATACAND HCT [Suspect]
  2. MARCUMAR [Concomitant]
  3. CARVEDILOL [Concomitant]
  4. SPIRO [Concomitant]
  5. SORTIS [Concomitant]
  6. EZETROL [Concomitant]

REACTIONS (2)
  - ANGIONEUROTIC OEDEMA [None]
  - SWOLLEN TONGUE [None]
